FAERS Safety Report 8214278-X (Version None)
Quarter: 2012Q1

REPORT INFORMATION
  Report Type: 
  Country: None (occurrence: None)
  Receive Date: 20120316
  Receipt Date: 20120309
  Transmission Date: 20120608
  Serious: Yes (Hospitalization)
  Sender: FDA-Public Use
  Company Number: US-BAYER-2012-024912

PATIENT
  Age: 17 Year
  Sex: Female
  Weight: 57.143 kg

DRUGS (2)
  1. TRINESSA-28 [Concomitant]
  2. YAZ [Suspect]

REACTIONS (2)
  - PULMONARY EMBOLISM [None]
  - PULMONARY INFARCTION [None]
